FAERS Safety Report 6651946-5 (Version None)
Quarter: 2010Q1

REPORT INFORMATION
  Report Type: 
  Country: None (occurrence: None)
  Receive Date: 20100325
  Receipt Date: 20100318
  Transmission Date: 20100710
  Serious: Yes (Hospitalization)
  Sender: FDA-Public Use
  Company Number: FR-WYE-G05182809

PATIENT
  Age: 73 Year
  Sex: Female

DRUGS (3)
  1. TORISEL [Suspect]
     Indication: RENAL CELL CARCINOMA RECURRENT
     Route: 042
     Dates: start: 20091005, end: 20091113
  2. ACTISKENAN [Suspect]
     Indication: ABDOMINAL PAIN
     Dosage: UNKNOWN
     Route: 048
     Dates: start: 20090101, end: 20091001
  3. SKENAN [Suspect]
     Indication: ABDOMINAL PAIN
     Dosage: UNKNOWN
     Route: 048
     Dates: start: 20090101, end: 20091001

REACTIONS (4)
  - CONFUSIONAL STATE [None]
  - DISORIENTATION [None]
  - HALLUCINATION [None]
  - SPEECH DISORDER [None]
